FAERS Safety Report 10890063 (Version 2)
Quarter: 2016Q4

REPORT INFORMATION
  Report Type: Report from Study
  Country: US (occurrence: US)
  Receive Date: 20150305
  Receipt Date: 20161010
  Transmission Date: 20170206
  Serious: Yes (Hospitalization, Other)
  Sender: FDA-Public Use
  Company Number: US-ROCHE-1545682

PATIENT
  Age: 62 Year
  Sex: Female
  Weight: 87.2 kg

DRUGS (6)
  1. PACLITAXEL. [Suspect]
     Active Substance: PACLITAXEL
     Indication: OVARIAN EPITHELIAL CANCER
     Dosage: OVER 1 HOUR ON DAY 1,8,15 (CYCLE 1) ?LAST DOSE WAS ADMINISTERED ON 15/AUG/2014, DOSING COMPLETED AT
     Route: 042
     Dates: start: 20140418, end: 20140815
  2. BEVACIZUMAB [Suspect]
     Active Substance: BEVACIZUMAB
     Indication: OVARIAN EPITHELIAL CANCER
     Dosage: OVER 30-90 MINUTES; 30/MAY/2014, 20/JUN/2014, 18/JUL/2014, 15/AUG/2014, 03/OCT/2014, 24/OCT/2014, 14
     Route: 042
     Dates: start: 20140509, end: 20150817
  3. VELIPARIB [Suspect]
     Active Substance: VELIPARIB
     Indication: OVARIAN EPITHELIAL CANCER
     Dosage: ON DAYS 1-21?09/MAY/2014, 20/JUN/2014, 18/JUL/2014, 15/AUG/2014
     Route: 048
     Dates: start: 20140418
  4. VELIPARIB [Suspect]
     Active Substance: VELIPARIB
     Route: 048
     Dates: start: 20140530, end: 20150817
  5. CARBOPLATIN. [Suspect]
     Active Substance: CARBOPLATIN
     Indication: OVARIAN EPITHELIAL CANCER
     Dosage: AREA UNDER CURVE (AUC) EQUALS 6 OVER 30MINUTES ON DAY 1 OF THE CYCLE ?LAST DOSE WAS ADMINISTERED ON
     Route: 042
     Dates: start: 20140418, end: 20140815
  6. LOVENOX [Concomitant]
     Active Substance: ENOXAPARIN SODIUM

REACTIONS (10)
  - Neutrophil count decreased [Unknown]
  - Anaemia [Unknown]
  - Acute kidney injury [Recovered/Resolved]
  - Embolism [Unknown]
  - Abdominal pain [Unknown]
  - Decreased appetite [Unknown]
  - Platelet count decreased [Unknown]
  - Hyponatraemia [Unknown]
  - Anaemia [Unknown]
  - Intra-abdominal haemorrhage [Unknown]

NARRATIVE: CASE EVENT DATE: 20150125
